FAERS Safety Report 4578664-1 (Version None)
Quarter: 2005Q1

REPORT INFORMATION
  Report Type: 
  Country: None (occurrence: None)
  Receive Date: 20050209
  Receipt Date: 20050209
  Transmission Date: 20050727
  Serious: Yes (Life-Threatening)
  Sender: FDA-Public Use
  Company Number: None

PATIENT
  Age: 54 Year
  Sex: Female
  Weight: 89.3586 kg

DRUGS (6)
  1. INFLIXIMAB    STANDARD [Suspect]
     Indication: PSORIATIC ARTHROPATHY
     Dosage: 7.5-10MG/K   Q 6-8 WEEKS   INTRAVENOU
     Route: 042
     Dates: start: 20020701, end: 20041122
  2. METHOTREXATE [Suspect]
     Dosage: 17.5 MG   PER WEEK   ORAL
     Route: 048
     Dates: start: 20001201, end: 20041122
  3. ENBREL [Concomitant]
  4. PREDNISONE TAB [Concomitant]
  5. HORMONE REPLACEMENT THERAPY [Concomitant]
  6. PROTONIX [Concomitant]

REACTIONS (2)
  - METASTATIC NEOPLASM [None]
  - PERITONEAL CARCINOMA [None]
